FAERS Safety Report 7557045-2 (Version None)
Quarter: 2011Q2

REPORT INFORMATION
  Report Type: 
  Country: None (occurrence: None)
  Receive Date: 20110620
  Receipt Date: 20110606
  Transmission Date: 20111010
  Serious: Yes (Other)
  Sender: FDA-Public Use
  Company Number: PHHY2011BR50560

PATIENT
  Sex: Male

DRUGS (11)
  1. CILOSTAZOL [Concomitant]
     Dosage: 100 MG, BID
     Route: 048
  2. DIOVAN [Suspect]
     Indication: HYPERTENSION
     Dosage: 1 DF, A DAY
     Route: 048
  3. WARFARIN SODIUM [Concomitant]
     Dosage: HALF TABLET, UNK
     Route: 048
  4. ALDACTONE [Concomitant]
     Dosage: UNK
     Route: 048
  5. DIGOXIN [Concomitant]
     Dosage: 7.5 MG (HALF TABLET)
     Route: 048
  6. DIOVAN HCT [Suspect]
     Dosage: 1 DF, A DAY (160/12.5 MG)
  7. ATENOLOL [Concomitant]
     Dosage: 50 MG, QD
     Route: 048
  8. OMEPRAZOLE [Concomitant]
     Dosage: 20 MG, QD
     Route: 048
  9. DIOVAN HCT [Suspect]
     Dosage: 2 DF, A DAY (160/12.5 MG)
     Dates: start: 20100101
  10. CLOPIDOGREL [Concomitant]
     Dosage: 75 MG, QD
     Route: 048
     Dates: start: 20060501
  11. ASPIRIN [Concomitant]
     Dosage: UNK
     Route: 048
     Dates: start: 20060501

REACTIONS (7)
  - DIABETES MELLITUS [None]
  - GASTRIC ULCER [None]
  - FLUID RETENTION [None]
  - HAEMORRHAGE [None]
  - ATRIAL FIBRILLATION [None]
  - ANGINA PECTORIS [None]
  - ARRHYTHMIA [None]
